FAERS Safety Report 18800245 (Version 1)
Quarter: 2021Q1

REPORT INFORMATION
  Report Type: Spontaneous
  Country: US (occurrence: US)
  Receive Date: 20210128
  Receipt Date: 20210128
  Transmission Date: 20210419
  Serious: No
  Sender: FDA-Public Use
  Company Number: US-LUPIN PHARMACEUTICALS INC.-2020-10590

PATIENT
  Age: 47 Year
  Sex: Male

DRUGS (3)
  1. QUETIAPINE FUMARATE EXTENDED?RELEASE TABLETS, 400 MG [Suspect]
     Active Substance: QUETIAPINE FUMARATE
     Indication: BIPOLAR DISORDER
     Dosage: 1200 MILLIGRAM, QD (EXTENDED RELEASE )
     Route: 065
  2. OLANZAPINE. [Concomitant]
     Active Substance: OLANZAPINE
     Indication: SLEEP DISORDER
     Dosage: UNK
     Route: 065
  3. QUETIAPINE FUMARATE. [Concomitant]
     Active Substance: QUETIAPINE FUMARATE
     Indication: BIPOLAR DISORDER
     Dosage: 1200 MILLIGRAM, QD (IMMEDIATE RELEASE )
     Route: 065

REACTIONS (4)
  - Sleep deficit [Unknown]
  - Hypoaesthesia [Unknown]
  - Pain [Unknown]
  - Drug ineffective [Unknown]

NARRATIVE: CASE EVENT DATE: 201706
